FAERS Safety Report 25739235 (Version 2)
Quarter: 2025Q3

REPORT INFORMATION
  Report Type: Report from Study
  Country: JP (occurrence: JP)
  Receive Date: 20250829
  Receipt Date: 20250918
  Transmission Date: 20251021
  Serious: Yes (Other)
  Sender: ALEXION PHARMACEUTICALS
  Company Number: JP-ASTRAZENECA-240063200_011820_P_1

PATIENT
  Age: 17 Year
  Sex: Male
  Weight: 62 kg

DRUGS (5)
  1. KOSELUGO [Suspect]
     Active Substance: SELUMETINIB
     Indication: Neurofibroma
     Dosage: 80 MILLIGRAM, QD
     Dates: start: 20230623, end: 20230701
  2. KOSELUGO [Suspect]
     Active Substance: SELUMETINIB
     Dosage: 40 MILLIGRAM, QD
     Dates: start: 20230821, end: 20231105
  3. KOSELUGO [Suspect]
     Active Substance: SELUMETINIB
     Dosage: 40 MILLIGRAM, QD
     Dates: start: 20240112, end: 20240314
  4. KOSELUGO [Suspect]
     Active Substance: SELUMETINIB
     Dosage: 60 MILLIGRAM, QD
     Dates: start: 20240315, end: 20240517
  5. KOSELUGO [Suspect]
     Active Substance: SELUMETINIB
     Dosage: 40 MILLIGRAM, QD
     Dates: start: 20240527

REACTIONS (3)
  - Haematochezia [Recovering/Resolving]
  - Acne [Recovering/Resolving]
  - Headache [Recovering/Resolving]

NARRATIVE: CASE EVENT DATE: 20230701
